FAERS Safety Report 9528211 (Version 3)
Quarter: 2013Q4

REPORT INFORMATION
  Report Type: Spontaneous
  Country: JP (occurrence: JP)
  Receive Date: 20130917
  Receipt Date: 20131127
  Transmission Date: 20140711
  Serious: No
  Sender: FDA-Public Use
  Company Number: PHHY2013JP101665

PATIENT
  Age: 75 Year
  Sex: Female

DRUGS (8)
  1. FAMVIR [Suspect]
     Indication: HERPES ZOSTER
     Dosage: 500 MG, TID
     Route: 048
     Dates: start: 20130726, end: 20130729
  2. FAMVIR [Suspect]
     Dosage: 500 MG, QD  (IN THE EVENING)
     Route: 048
     Dates: start: 20130731, end: 20130731
  3. FAMVIR [Suspect]
     Dosage: 500 MG, BID (MORNING AND EVENING)
     Route: 048
     Dates: start: 20130801, end: 20130801
  4. FAMVIR [Suspect]
     Dosage: 500 MG, BID
     Route: 048
     Dates: start: 20130805, end: 20130806
  5. ZOVIRAX [Concomitant]
     Dosage: UNK UKN, UNK
     Route: 042
     Dates: start: 20130731
  6. CALONAL [Concomitant]
     Dosage: 600 MG, UNK
     Route: 048
     Dates: start: 20130726, end: 20130820
  7. MUCOSTA [Concomitant]
     Dosage: 300 MG, UNK
     Route: 048
     Dates: start: 20130726, end: 20130820
  8. LOXONIN [Concomitant]
     Dosage: UNK UKN, UNK
     Route: 048
     Dates: start: 20130726, end: 20130820

REACTIONS (3)
  - Sedation [Recovered/Resolved]
  - Balance disorder [Recovered/Resolved]
  - Dizziness [Recovered/Resolved]
